FAERS Safety Report 7759536 (Version 2)
Quarter: 2013Q2

REPORT INFORMATION
  Report Type: Report from Study
  Country: NL (occurrence: NL)
  Receive Date: 20110113
  Receipt Date: 20130416
  Transmission Date: 20140414
  Serious: Yes (Hospitalization)
  Sender: FDA-Public Use
  Company Number: NL-ROCHE-752614

PATIENT
  Sex: Male

DRUGS (2)
  1. CAPECITABINE [Suspect]
     Indication: ANAL CANCER
     Dosage: 2+/- 1 HOUR BEFORE RADIOTHERAPY
     Route: 048
  2. MITOMYCIN C [Suspect]
     Indication: ANAL CANCER
     Dosage: 5 MINUTE BOLUS INJECTION, ON DAY 1.
     Route: 040

REACTIONS (5)
  - Fatigue [Unknown]
  - Nausea [Unknown]
  - Dehydration [Unknown]
  - Hyperkalaemia [Unknown]
  - Blood glucose fluctuation [Recovering/Resolving]
